FAERS Safety Report 21723555 (Version 1)
Quarter: 2022Q4

REPORT INFORMATION
  Report Type: Spontaneous
  Country: US (occurrence: None)
  Receive Date: 20221213
  Receipt Date: 20221213
  Transmission Date: 20230113
  Serious: Yes (Disabling)
  Sender: FDA-Public Use
  Company Number: None

PATIENT
  Age: 45 Year
  Sex: Female
  Weight: 123.75 kg

DRUGS (1)
  1. OZEMPIC [Suspect]
     Active Substance: SEMAGLUTIDE
     Dosage: OTHER QUANTITY : 1.0 INJECTION(S);?OTHER FREQUENCY : 1 X WEEK;?OTHER ROUTE : INJECTED IN THIGH FAT;?
     Route: 050
     Dates: start: 20220327, end: 20221201

REACTIONS (1)
  - Alopecia [None]

NARRATIVE: CASE EVENT DATE: 20220615
